FAERS Safety Report 24125041 (Version 1)
Quarter: 2024Q3

REPORT INFORMATION
  Report Type: Spontaneous
  Country: CA (occurrence: CA)
  Receive Date: 20240723
  Receipt Date: 20240723
  Transmission Date: 20241016
  Serious: Yes (Other)
  Sender: Haleon PLC
  Company Number: CA-HALEON-2187372

PATIENT
  Age: 6 Decade
  Sex: Female

DRUGS (6)
  1. DICLOFENAC SODIUM [Suspect]
     Active Substance: DICLOFENAC\DICLOFENAC SODIUM
     Indication: Pain in extremity
     Dosage: TIME INTERVAL: 0.33333333 DAYS
     Route: 061
  2. NAPROXEN [Suspect]
     Active Substance: NAPROXEN
     Indication: Pain in extremity
  3. GABAPENTIN [Suspect]
     Active Substance: GABAPENTIN
     Indication: Pain in extremity
     Dosage: TIME INTERVAL: 0.33333333 DAYS
     Route: 048
  4. CELECOXIB [Suspect]
     Active Substance: CELECOXIB
     Indication: Pain in extremity
     Route: 048
  5. CELECOXIB [Suspect]
     Active Substance: CELECOXIB
     Route: 048
  6. TRAMADOL HYDROCHLORIDE [Suspect]
     Active Substance: TRAMADOL HYDROCHLORIDE
     Indication: Pain in extremity

REACTIONS (2)
  - Drug ineffective [Unknown]
  - Off label use [Unknown]
